FAERS Safety Report 6152083-9 (Version None)
Quarter: 2009Q2

REPORT INFORMATION
  Report Type: 
  Country: None (occurrence: None)
  Receive Date: 20090408
  Receipt Date: 20090408
  Transmission Date: 20091009
  Serious: No
  Sender: FDA-Public Use
  Company Number: None

PATIENT
  Age: 50 Year
  Sex: Male
  Weight: 81.6475 kg

DRUGS (1)
  1. TRAMADOL HCL [Suspect]
     Indication: BACK PAIN
     Dosage: 50MG 1 TAB / SIX HOURS PO
     Route: 048
     Dates: start: 20090406, end: 20090406

REACTIONS (4)
  - HANGOVER [None]
  - HEADACHE [None]
  - INSOMNIA [None]
  - PRURITUS [None]
